FAERS Safety Report 13654631 (Version 3)
Quarter: 2019Q1

REPORT INFORMATION
  Report Type: Report from Study
  Country: NO (occurrence: NO)
  Receive Date: 20170615
  Receipt Date: 20190201
  Transmission Date: 20190417
  Serious: Yes (Hospitalization)
  Sender: FDA-Public Use
  Company Number: NO-ROCHE-1630106

PATIENT
  Age: 34 Year
  Sex: Female
  Weight: 73.9 kg

DRUGS (31)
  1. ATEZOLIZUMAB. [Suspect]
     Active Substance: ATEZOLIZUMAB
     Indication: NEOPLASM
     Dosage: DATE OF THE MOST RECENT DOSE OF ATEZOLIZUMAB PRIOR TO THE AE ONSET WAS 20AUG/2015 AT 13:55
     Route: 042
     Dates: start: 20150820
  2. VENLAFAXIN [Concomitant]
     Active Substance: VENLAFAXINE HYDROCHLORIDE
     Route: 048
  3. PARACET (NORWAY) [Concomitant]
     Route: 048
  4. CEFOTAXIME [Concomitant]
     Active Substance: CEFOTAXIME SODIUM
     Indication: COLITIS
     Route: 042
     Dates: start: 20160714, end: 20160721
  5. CEFOTAXIME [Concomitant]
     Active Substance: CEFOTAXIME SODIUM
     Indication: ACUTE KIDNEY INJURY
     Route: 042
     Dates: start: 20160714, end: 20160722
  6. PALLADON [Concomitant]
     Active Substance: HYDROMORPHONE
     Route: 048
     Dates: start: 20151221, end: 20160706
  7. PROGYNOVA [Concomitant]
     Active Substance: ESTRADIOL VALERATE
     Route: 048
  8. METRONIDAZOL [Concomitant]
     Active Substance: METRONIDAZOLE
     Indication: COLITIS
     Route: 048
     Dates: start: 20160704, end: 20160711
  9. PALLADON [Concomitant]
     Active Substance: HYDROMORPHONE
     Indication: ARTHRALGIA
     Route: 048
     Dates: end: 20151221
  10. PALLADON [Concomitant]
     Active Substance: HYDROMORPHONE
     Dosage: CONTINOUS 24 HOURS
     Route: 058
     Dates: start: 20160708, end: 20160712
  11. VOLTAREN [Concomitant]
     Active Substance: DICLOFENAC SODIUM
     Route: 048
  12. ZOPICLONE [Concomitant]
     Active Substance: ZOPICLONE
     Indication: INSOMNIA
     Route: 048
     Dates: start: 20160429, end: 20160714
  13. KETALAR [Concomitant]
     Active Substance: KETAMINE HYDROCHLORIDE
     Indication: BACK PAIN
     Dosage: CONTINUOUS 24 HOURS
     Route: 058
     Dates: start: 20160708, end: 20160712
  14. FUROSEMID [Concomitant]
     Active Substance: FUROSEMIDE
     Indication: ACUTE KIDNEY INJURY
     Route: 042
     Dates: start: 20160717
  15. APODORM [Concomitant]
     Active Substance: NITRAZEPAM
     Indication: INSOMNIA
     Route: 048
     Dates: start: 20160715
  16. PALLADON [Concomitant]
     Active Substance: HYDROMORPHONE
     Dosage: CONTINOUS 24 HOURS
     Route: 048
     Dates: start: 20160706, end: 20160707
  17. AMOXICILLIN. [Concomitant]
     Active Substance: AMOXICILLIN
     Indication: COLITIS
     Route: 048
     Dates: start: 20160704, end: 20160711
  18. ZOFRAN [Concomitant]
     Active Substance: ONDANSETRON HYDROCHLORIDE
     Indication: NAUSEA
     Dosage: PUMP 24 HOURS
     Route: 058
     Dates: start: 20160715
  19. MORPHINE [Concomitant]
     Active Substance: MORPHINE
     Route: 042
     Dates: start: 20160706
  20. ZYRTEC [Concomitant]
     Active Substance: CETIRIZINE HYDROCHLORIDE
     Route: 048
     Dates: start: 2000
  21. PARACETAMOL [Concomitant]
     Active Substance: ACETAMINOPHEN
     Indication: INFLUENZA LIKE ILLNESS
     Route: 048
     Dates: start: 20150914, end: 20150925
  22. TAZOCIN [Concomitant]
     Active Substance: PIPERACILLIN SODIUM\TAZOBACTAM SODIUM
     Indication: COLITIS
     Route: 042
     Dates: start: 20160712, end: 20160714
  23. OIL ENEMA [Concomitant]
     Indication: CONSTIPATION
     Route: 054
     Dates: start: 20160713
  24. VALOID [Concomitant]
     Active Substance: CYCLIZINE HYDROCHLORIDE
     Indication: NAUSEA
     Route: 058
     Dates: start: 20160715
  25. MIDAZOLAM [Concomitant]
     Active Substance: MIDAZOLAM HYDROCHLORIDE
     Indication: BACK PAIN
     Dosage: CONTINOUS 24 HOURS
     Route: 058
     Dates: start: 20160708, end: 20160712
  26. HALDOL [Concomitant]
     Active Substance: HALOPERIDOL
     Indication: NAUSEA
     Dosage: PUMP 24 HOURS
     Route: 058
     Dates: start: 20160715
  27. TAZOCIN [Concomitant]
     Active Substance: PIPERACILLIN SODIUM\TAZOBACTAM SODIUM
     Indication: COLITIS
     Route: 042
     Dates: start: 20160701, end: 20160704
  28. PREDNISOLON [Concomitant]
     Active Substance: PREDNISOLONE
     Indication: ACUTE KIDNEY INJURY
     Route: 048
     Dates: start: 20160717
  29. SOLU-CORTEF [Concomitant]
     Active Substance: HYDROCORTISONE SODIUM SUCCINATE
     Indication: RASH
     Route: 042
     Dates: start: 20160714, end: 20160714
  30. FENTANYL. [Concomitant]
     Active Substance: FENTANYL
     Indication: BACK PAIN
     Route: 062
     Dates: start: 20160712
  31. DEKSKLORFENIRAMIN [Concomitant]
     Indication: RASH
     Route: 042
     Dates: start: 20160714, end: 20160714

REACTIONS (1)
  - Pharyngitis [Recovered/Resolved]

NARRATIVE: CASE EVENT DATE: 20150831
